FAERS Safety Report 9216268 (Version 2)
Quarter: 2013Q3

REPORT INFORMATION
  Report Type: Spontaneous
  Country: US (occurrence: US)
  Receive Date: 20130408
  Receipt Date: 20130807
  Transmission Date: 20140515
  Serious: Yes (Life-Threatening, Hospitalization)
  Sender: FDA-Public Use
  Company Number: US-BAYER-2013-042535

PATIENT
  Age: 36 Year
  Sex: Female
  Weight: 102.95 kg

DRUGS (5)
  1. YASMIN [Suspect]
     Dosage: UNK
     Dates: start: 200506, end: 200509
  2. WELLBUTRIN [Concomitant]
  3. BUSPAR [Concomitant]
  4. TOPAMAX [Concomitant]
  5. BACTRIM [Concomitant]
     Indication: URINARY TRACT INFECTION

REACTIONS (9)
  - Pulmonary embolism [None]
  - Deep vein thrombosis [None]
  - Injury [None]
  - Pain in extremity [None]
  - Anhedonia [None]
  - Fear of disease [None]
  - Anxiety [None]
  - Dyspnoea [None]
  - Limb injury [None]
